FAERS Safety Report 8735615 (Version 6)
Quarter: 2013Q2

REPORT INFORMATION
  Report Type: Spontaneous
  Country: US (occurrence: US)
  Receive Date: 20120822
  Receipt Date: 20130423
  Transmission Date: 20140414
  Serious: Yes (Other)
  Sender: FDA-Public Use
  Company Number: US-PFIZER INC-2012201751

PATIENT
  Age: 27 Year
  Sex: Female
  Weight: 61.2 kg

DRUGS (4)
  1. DEPO-PROVERA [Suspect]
     Indication: CONTRACEPTION
     Dosage: UNK
     Dates: start: 20110307
  2. DEPO-PROVERA [Suspect]
     Dosage: 150 MG, EVERY 3 MONTHS (EVERY 12 WKS)
     Route: 030
     Dates: start: 20111118
  3. DEPO-PROVERA [Suspect]
     Dosage: 150 MG, EVERY 3 MONTHS
     Route: 030
     Dates: start: 20120210
  4. DEPO-PROVERA [Suspect]
     Dosage: 150 MG, EVERY 3 MONTHS
     Route: 030
     Dates: start: 20120511, end: 20120511

REACTIONS (2)
  - Drug ineffective [Unknown]
  - Unintended pregnancy [Unknown]
